FAERS Safety Report 4958845-5 (Version None)
Quarter: 2006Q1

REPORT INFORMATION
  Report Type: 
  Country: None (occurrence: None)
  Receive Date: 20060324
  Receipt Date: 20060221
  Transmission Date: 20060701
  Serious: Yes (Death, Hospitalization, Disabling)
  Sender: FDA-Public Use
  Company Number: 426618

PATIENT
  Age: 16 Year
  Sex: Female
  Weight: 68 kg

DRUGS (10)
  1. ACCUTANE [Suspect]
     Indication: ACNE
     Dosage: ORAL
     Route: 048
     Dates: start: 19930815, end: 19931130
  2. ASACOL [Concomitant]
  3. IMURAN [Concomitant]
  4. PREDNISONE TAB [Concomitant]
  5. PHENERGAN (PROMETHAZINE HYDROCHLORIDE) [Concomitant]
  6. CIPROFLOXACIN HCL [Concomitant]
  7. TEGRETOL [Concomitant]
  8. DEMEROL [Concomitant]
  9. METHADONE HCL [Concomitant]
  10. CORTISOL [Concomitant]

REACTIONS (119)
  - ANAEMIA [None]
  - ANTICONVULSANT DRUG LEVEL DECREASED [None]
  - ANXIETY [None]
  - APHASIA [None]
  - APHTHOUS STOMATITIS [None]
  - ASTHENIA [None]
  - AUTOIMMUNE DISORDER [None]
  - AUTOIMMUNE HEPATITIS [None]
  - BACK PAIN [None]
  - BLOOD ELECTROLYTES ABNORMAL [None]
  - BRONCHITIS [None]
  - CALCINOSIS [None]
  - CATHETER RELATED COMPLICATION [None]
  - CELLULITIS [None]
  - CERVICITIS [None]
  - CHOLECYSTITIS [None]
  - CONDITION AGGRAVATED [None]
  - CONDYLOMA ACUMINATUM [None]
  - CONSTIPATION [None]
  - CONVULSION [None]
  - CROHN'S DISEASE [None]
  - CULTURE WOUND POSITIVE [None]
  - DECREASED APPETITE [None]
  - DIABETES MELLITUS [None]
  - DIABETES MELLITUS INADEQUATE CONTROL [None]
  - DIARRHOEA [None]
  - DRUG DEPENDENCE [None]
  - DRUG TOXICITY [None]
  - DYSMENORRHOEA [None]
  - DYSPHONIA [None]
  - DYSURIA [None]
  - EAR PAIN [None]
  - ECCHYMOSIS [None]
  - ELECTROENCEPHALOGRAM ABNORMAL [None]
  - ENDOMETRIOSIS [None]
  - EPISTAXIS [None]
  - FALL [None]
  - FIBROMYALGIA [None]
  - FOLLICULITIS [None]
  - FUNGAL INFECTION [None]
  - GAMMOPATHY [None]
  - GLOSSODYNIA [None]
  - GRAND MAL CONVULSION [None]
  - HAEMATURIA [None]
  - HAEMORRHOIDS [None]
  - HEAD INJURY [None]
  - HEPATIC CIRRHOSIS [None]
  - HEPATIC FAILURE [None]
  - HERNIA [None]
  - HYPERSENSITIVITY [None]
  - HYPERSOMNIA [None]
  - HYPERTENSION [None]
  - HYPOMAGNESAEMIA [None]
  - ILL-DEFINED DISORDER [None]
  - IMPAIRED HEALING [None]
  - INADEQUATE ANALGESIA [None]
  - INCISION SITE COMPLICATION [None]
  - INCREASED TENDENCY TO BRUISE [None]
  - INFECTIOUS MONONUCLEOSIS [None]
  - INFLAMMATORY BOWEL DISEASE [None]
  - INJURY [None]
  - INSOMNIA [None]
  - INTERNATIONAL NORMALISED RATIO DECREASED [None]
  - INTESTINAL HAEMORRHAGE [None]
  - IRRITABLE BOWEL SYNDROME [None]
  - JOINT SPRAIN [None]
  - LIPIDS INCREASED [None]
  - LIVER DISORDER [None]
  - LOCALISED INFECTION [None]
  - MELANOCYTIC NAEVUS [None]
  - METRORRHAGIA [None]
  - MIGRAINE [None]
  - MOUTH ULCERATION [None]
  - MULTI-ORGAN DISORDER [None]
  - MUSCULOSKELETAL CHEST PAIN [None]
  - NAUSEA [None]
  - NECK PAIN [None]
  - NEPHROLITHIASIS [None]
  - NEUROLOGICAL SYMPTOM [None]
  - NIGHT SWEATS [None]
  - OBSESSIVE-COMPULSIVE DISORDER [None]
  - OPEN WOUND [None]
  - ORAL CANDIDIASIS [None]
  - ORAL SOFT TISSUE DISORDER [None]
  - OVARIAN CYST [None]
  - PAIN [None]
  - PANCYTOPENIA [None]
  - PARAESTHESIA [None]
  - PELVIC INFLAMMATORY DISEASE [None]
  - PERIRECTAL ABSCESS [None]
  - PHARYNGOLARYNGEAL PAIN [None]
  - PLEURISY [None]
  - POST PROCEDURAL COMPLICATION [None]
  - PROCEDURAL PAIN [None]
  - PURULENCE [None]
  - PYELONEPHRITIS [None]
  - RECTAL HAEMORRHAGE [None]
  - RENAL FAILURE [None]
  - SEPSIS [None]
  - SEXUAL ASSAULT VICTIM [None]
  - SINUS TACHYCARDIA [None]
  - SKIN STRIAE [None]
  - SKIN ULCER [None]
  - SMEAR CERVIX ABNORMAL [None]
  - SPLENOMEGALY [None]
  - STOMATITIS [None]
  - SUPERNUMERARY NIPPLE [None]
  - SUPRAPUBIC PAIN [None]
  - SYNOVITIS [None]
  - SYSTEMIC LUPUS ERYTHEMATOSUS [None]
  - THROMBOCYTOPENIA [None]
  - TREATMENT NONCOMPLIANCE [None]
  - UPPER RESPIRATORY TRACT INFECTION [None]
  - URINARY TRACT INFECTION [None]
  - VAGINAL CANDIDIASIS [None]
  - VAGINAL DISORDER [None]
  - VISUAL DISTURBANCE [None]
  - VOMITING [None]
  - WISDOM TEETH REMOVAL [None]
